FAERS Safety Report 9345928 (Version 3)
Quarter: 2013Q3

REPORT INFORMATION
  Report Type: Report from Study
  Country: CA (occurrence: CA)
  Receive Date: 20130613
  Receipt Date: 20130726
  Transmission Date: 20140515
  Serious: Yes (Other)
  Sender: FDA-Public Use
  Company Number: CA-EISAI INC-E7389-03840-SOL-CA

PATIENT
  Age: 53 Year
  Sex: Female
  Weight: 54 kg

DRUGS (3)
  1. HALAVEN [Suspect]
     Indication: BREAST CANCER METASTATIC
     Route: 041
     Dates: start: 20130510, end: 201307
  2. ASA [Concomitant]
     Indication: PRODUCT USED FOR UNKNOWN INDICATION
     Route: 048
  3. METFORMIN [Concomitant]
     Indication: PRODUCT USED FOR UNKNOWN INDICATION
     Route: 065

REACTIONS (8)
  - Metastases to lung [Unknown]
  - Metastases to liver [Unknown]
  - Pneumonia [Unknown]
  - Decreased appetite [Unknown]
  - Neutropenia [Unknown]
  - Nausea [Unknown]
  - Pyrexia [Recovered/Resolved]
  - Red blood cell count decreased [Recovered/Resolved]
